FAERS Safety Report 7732564-4 (Version None)
Quarter: 2011Q3

REPORT INFORMATION
  Report Type: 
  Country: None (occurrence: None)
  Receive Date: 20110906
  Receipt Date: 20110317
  Transmission Date: 20111222
  Serious: No
  Sender: FDA-Public Use
  Company Number: US-BAYER-2011-024078

PATIENT
  Sex: Female

DRUGS (1)
  1. MIRENA [Suspect]
     Indication: PRODUCT USED FOR UNKNOWN INDICATION
     Dosage: UNK
     Dates: start: 20110304, end: 20110307

REACTIONS (2)
  - DEVICE DEPLOYMENT ISSUE [None]
  - PAIN [None]
